FAERS Safety Report 9510252 (Version 1)
Quarter: 2013Q3

REPORT INFORMATION
  Report Type: Spontaneous
  Country: US (occurrence: US)
  Receive Date: 20130909
  Receipt Date: 20130909
  Transmission Date: 20140515
  Serious: No
  Sender: FDA-Public Use
  Company Number: US-BRISTOL-MYERS SQUIBB COMPANY-18594234

PATIENT
  Age: 46 Year
  Sex: Female

DRUGS (5)
  1. ABILIFY TABS 15 MG [Suspect]
     Dosage: DSCONTINUED ABILIFY ON 03DEC2012
     Dates: start: 201110, end: 20121203
  2. AMITRIPTYLINE [Concomitant]
     Dosage: AMITRIPTYLINE 50 MG
  3. CHANTIX [Concomitant]
  4. CYMBALTA [Concomitant]
  5. PROZAC [Concomitant]

REACTIONS (3)
  - Weight increased [Unknown]
  - Dry skin [Unknown]
  - Rash [Unknown]
